FAERS Safety Report 17716643 (Version 1)
Quarter: 2020Q2

REPORT INFORMATION
  Report Type: Spontaneous
  Country: None (occurrence: US)
  Receive Date: 20200428
  Receipt Date: 20200428
  Transmission Date: 20200714
  Serious: Yes (Life-Threatening, Hospitalization, Other)
  Sender: FDA-Public Use
  Company Number: US-ORION CORPORATION ORION PHARMA-20_00008972

PATIENT
  Age: 72 Year
  Sex: Male

DRUGS (7)
  1. METHOTREXATE. [Suspect]
     Active Substance: METHOTREXATE
     Indication: ARTHRITIS REACTIVE
     Route: 065
  2. METHOTREXATE. [Suspect]
     Active Substance: METHOTREXATE
     Indication: GOUT
  3. METHOTREXATE. [Suspect]
     Active Substance: METHOTREXATE
     Indication: GOUTY TOPHUS
  4. PREDNISONE. [Suspect]
     Active Substance: PREDNISONE
     Route: 048
  5. PREDNISONE. [Suspect]
     Active Substance: PREDNISONE
     Indication: ARTHRITIS REACTIVE
     Route: 048
  6. PREDNISONE. [Suspect]
     Active Substance: PREDNISONE
     Indication: GOUT
     Route: 048
  7. PREDNISONE. [Suspect]
     Active Substance: PREDNISONE
     Indication: GOUTY TOPHUS
     Dosage: WITH INCREASED DOSES FOR FLARES
     Route: 048

REACTIONS (11)
  - Product use in unapproved indication [Unknown]
  - Staphylococcus test positive [Recovering/Resolving]
  - Providencia infection [Recovering/Resolving]
  - Proteus test positive [Recovering/Resolving]
  - Immune reconstitution inflammatory syndrome [Recovering/Resolving]
  - Gout [Recovering/Resolving]
  - Mycobacterium chelonae infection [Recovering/Resolving]
  - Pseudomonas test positive [Recovering/Resolving]
  - Skin infection [Recovering/Resolving]
  - Osteomyelitis [Recovering/Resolving]
  - Enterococcus test positive [Recovering/Resolving]
